FAERS Safety Report 23662116 (Version 1)
Quarter: 2024Q1

REPORT INFORMATION
  Report Type: Spontaneous
  Country: US (occurrence: US)
  Receive Date: 20240322
  Receipt Date: 20240322
  Transmission Date: 20240410
  Serious: Yes (Other)
  Sender: FDA-Public Use
  Company Number: US-SA-2024SA084393

PATIENT
  Age: 71 Year
  Sex: Female

DRUGS (4)
  1. ARAVA [Suspect]
     Active Substance: LEFLUNOMIDE
     Indication: Idiopathic pulmonary fibrosis
     Dosage: 200 MG, QD
     Route: 048
     Dates: start: 20220407
  2. ARAVA [Suspect]
     Active Substance: LEFLUNOMIDE
     Dosage: 300 MG, QD
     Route: 048
  3. OFEV [Suspect]
     Active Substance: NINTEDANIB
     Dosage: UNK
  4. ZOFRAN [Concomitant]
     Active Substance: ONDANSETRON HYDROCHLORIDE
     Dosage: 8 MG

REACTIONS (17)
  - Pancreatic failure [Recovering/Resolving]
  - Rheumatoid arthritis [Unknown]
  - Illness [Unknown]
  - Rales [Unknown]
  - Drug hypersensitivity [Unknown]
  - Malaise [Unknown]
  - Nausea [Unknown]
  - Liver function test increased [Unknown]
  - Diarrhoea [Recovering/Resolving]
  - Fatigue [Not Recovered/Not Resolved]
  - Nasopharyngitis [Recovering/Resolving]
  - Abdominal pain [Unknown]
  - Vomiting [Unknown]
  - COVID-19 [Not Recovered/Not Resolved]
  - Diarrhoea [Recovered/Resolved]
  - Influenza [Not Recovered/Not Resolved]
  - Drug intolerance [Unknown]

NARRATIVE: CASE EVENT DATE: 20231204
